FAERS Safety Report 17416284 (Version 3)
Quarter: 2020Q3

REPORT INFORMATION
  Report Type: Spontaneous
  Country: FI (occurrence: FI)
  Receive Date: 20200213
  Receipt Date: 20200713
  Transmission Date: 20201102
  Serious: Yes (Life-Threatening)
  Sender: FDA-Public Use
  Company Number: FI-JNJFOC-20200208248

PATIENT
  Age: 48 Year
  Sex: Male

DRUGS (9)
  1. CISORDINOL?ACUTARD [Suspect]
     Active Substance: ZUCLOPENTHIXOL ACETATE
     Indication: PRODUCT USED FOR UNKNOWN INDICATION
     Route: 030
     Dates: start: 20170201, end: 20170301
  2. LEPONEX [Interacting]
     Active Substance: CLOZAPINE
     Indication: SCHIZOPHRENIA
     Dosage: 100,MG,DAILY
     Route: 048
     Dates: start: 20170307, end: 20170420
  3. XEPLION [Suspect]
     Active Substance: PALIPERIDONE PALMITATE
  4. ZYPADHERA [Suspect]
     Active Substance: OLANZAPINE PAMOATE
     Indication: PRODUCT USED FOR UNKNOWN INDICATION
     Route: 030
     Dates: start: 20130131, end: 20140729
  5. METFOREM [Interacting]
     Active Substance: METFORMIN HYDROCHLORIDE
     Indication: TYPE 2 DIABETES MELLITUS
     Dosage: 1000,MG,DAILY
     Route: 048
     Dates: start: 20170304
  6. XEPLION [Suspect]
     Active Substance: PALIPERIDONE PALMITATE
  7. RISPERDAL [Suspect]
     Active Substance: RISPERIDONE
     Indication: SCHIZOPHRENIA
     Dosage: 100,MG,DAILY
     Route: 048
     Dates: start: 20161216, end: 20170116
  8. XEPLION [Suspect]
     Active Substance: PALIPERIDONE PALMITATE
     Indication: PRODUCT USED FOR UNKNOWN INDICATION
     Route: 030
     Dates: start: 20161229, end: 20170130
  9. CLOZAPINE ACCORD [Interacting]
     Active Substance: CLOZAPINE
     Indication: SCHIZOPHRENIA
     Dosage: 100,MG,DAILY
     Route: 048
     Dates: start: 201703, end: 201703

REACTIONS (7)
  - Drug interaction [Recovered/Resolved]
  - Pulmonary embolism [Recovered/Resolved]
  - Liver injury [Recovered/Resolved]
  - Alanine aminotransferase increased [Recovered/Resolved]
  - Drug ineffective [Recovered/Resolved]
  - Hepatic steatosis [Recovered/Resolved]
  - Hepatic enzyme increased [Recovered/Resolved]

NARRATIVE: CASE EVENT DATE: 20170317
